FAERS Safety Report 10346465 (Version 2)
Quarter: 2014Q4

REPORT INFORMATION
  Report Type: Spontaneous
  Country: IT (occurrence: IT)
  Receive Date: 20140729
  Receipt Date: 20141121
  Transmission Date: 20150528
  Serious: Yes (Hospitalization)
  Sender: FDA-Public Use
  Company Number: IT-ROCHE-1441575

PATIENT
  Age: 80 Year
  Sex: Male

DRUGS (5)
  1. BISOPROLOL [Concomitant]
     Active Substance: BISOPROLOL
  2. ENANTONE LP [Concomitant]
     Active Substance: LEUPROLIDE ACETATE
  3. BRONCOVALEAS [Concomitant]
     Active Substance: ALBUTEROL
  4. CLENIL (ITALY) [Concomitant]
  5. ROCEFIN [Suspect]
     Active Substance: CEFTRIAXONE SODIUM
     Indication: PRODUCT USED FOR UNKNOWN INDICATION
     Route: 030
     Dates: start: 20140607, end: 20140612

REACTIONS (2)
  - Bronchopneumonia [Recovered/Resolved]
  - Drug ineffective [Unknown]

NARRATIVE: CASE EVENT DATE: 20140612
